FAERS Safety Report 12590853 (Version 1)
Quarter: 2016Q3

REPORT INFORMATION
  Report Type: Report from Study
  Country: CA (occurrence: CA)
  Receive Date: 20160726
  Receipt Date: 20160726
  Transmission Date: 20161109
  Serious: Yes (Other)
  Sender: FDA-Public Use
  Company Number: CA-AMGEN-CANSL2016093338

PATIENT
  Age: 43 Year
  Sex: Female

DRUGS (4)
  1. EZETIMIBE. [Concomitant]
     Active Substance: EZETIMIBE
     Dosage: UNK
  2. REPATHA [Suspect]
     Active Substance: EVOLOCUMAB
     Indication: DYSLIPIDAEMIA
     Dosage: 140 MG, UNK
     Route: 065
     Dates: start: 20160718
  3. REACTIN [Concomitant]
     Active Substance: DICLOFENAC SODIUM
     Dosage: UNK
  4. SYNTHROID [Concomitant]
     Active Substance: LEVOTHYROXINE SODIUM
     Indication: BLOOD CHOLESTEROL
     Dosage: UNK

REACTIONS (13)
  - Insomnia [Unknown]
  - Impaired work ability [Unknown]
  - Dyspnoea [Unknown]
  - Flatulence [Unknown]
  - Angina pectoris [Unknown]
  - Heart rate increased [Unknown]
  - Pollakiuria [Unknown]
  - Retching [Unknown]
  - Fatigue [Unknown]
  - Peripheral coldness [Recovered/Resolved]
  - Abdominal pain upper [Unknown]
  - Nervousness [Unknown]
  - Nausea [Not Recovered/Not Resolved]

NARRATIVE: CASE EVENT DATE: 201607
